FAERS Safety Report 9132720 (Version 1)
Quarter: 2013Q1

REPORT INFORMATION
  Report Type: Spontaneous
  Country: US (occurrence: US)
  Receive Date: 20130301
  Receipt Date: 20130301
  Transmission Date: 20140127
  Serious: Yes (Other)
  Sender: FDA-Public Use
  Company Number: US-PFIZER INC-2013072992

PATIENT
  Age: 40 Year
  Sex: Female
  Weight: 99.77 kg

DRUGS (6)
  1. NEURONTIN [Suspect]
     Indication: NEURALGIA
     Dosage: UNK
     Route: 048
  2. NEURONTIN [Suspect]
     Indication: POST LAMINECTOMY SYNDROME
  3. LYRICA [Suspect]
     Indication: NEURALGIA
     Dosage: 100 MG, 3X/DAY
     Route: 048
     Dates: start: 201112, end: 201202
  4. LYRICA [Suspect]
     Indication: POST LAMINECTOMY SYNDROME
  5. NORCO [Concomitant]
     Indication: PAIN
     Dosage: 10/325 MG, AS NEEDED
  6. LEVOTHYROXINE [Concomitant]
     Indication: HYPOTHYROIDISM
     Dosage: 100 UG, UNK

REACTIONS (2)
  - Back disorder [Unknown]
  - Pain [Unknown]
